FAERS Safety Report 6739883-9 (Version None)
Quarter: 2010Q2

REPORT INFORMATION
  Report Type: 
  Country: None (occurrence: None)
  Receive Date: 20100525
  Receipt Date: 20100518
  Transmission Date: 20101027
  Serious: Yes (Other)
  Sender: FDA-Public Use
  Company Number: ES-PFIZER INC-2010061938

PATIENT
  Age: 79 Year
  Sex: Male

DRUGS (2)
  1. ZELDOX [Suspect]
     Indication: SCHIZOPHRENIA
     Dosage: 80 MG DAILY
     Route: 048
     Dates: start: 20100326, end: 20100329
  2. TAVANIC [Suspect]
     Dosage: UNK
     Route: 048
     Dates: start: 20100325

REACTIONS (2)
  - FEBRILE CONVULSION [None]
  - OXYGEN SATURATION DECREASED [None]
